FAERS Safety Report 4655421-9 (Version None)
Quarter: 2005Q2

REPORT INFORMATION
  Report Type: 
  Country: None (occurrence: None)
  Receive Date: 20050505
  Receipt Date: 20050420
  Transmission Date: 20051028
  Serious: Yes (Other)
  Sender: FDA-Public Use
  Company Number: USA050496120

PATIENT
  Age: 5 Year
  Sex: Male
  Weight: 19 kg

DRUGS (1)
  1. STRATTERA [Suspect]
     Dosage: 18 MG DAY
     Dates: start: 20050320

REACTIONS (2)
  - ABNORMAL BEHAVIOUR [None]
  - SELF-INJURIOUS IDEATION [None]
